FAERS Safety Report 11650993 (Version 4)
Quarter: 2015Q4

REPORT INFORMATION
  Report Type: Spontaneous
  Country: US (occurrence: US)
  Receive Date: 20151021
  Receipt Date: 20151117
  Transmission Date: 20160304
  Serious: No
  Sender: FDA-Public Use
  Company Number: ALCN2015US006543

PATIENT
  Sex: Male

DRUGS (3)
  1. METFORMIN [Concomitant]
     Active Substance: METFORMIN HYDROCHLORIDE
     Indication: DIABETES MELLITUS
     Dosage: UNK
     Route: 048
  2. LUMIGAN [Concomitant]
     Active Substance: BIMATOPROST
     Indication: GLAUCOMA
     Dosage: 1 GTT, UNK
     Route: 047
  3. SIMBRINZA [Suspect]
     Active Substance: BRIMONIDINE TARTRATE\BRINZOLAMIDE
     Indication: GLAUCOMA
     Dosage: 1 GTT, TID
     Route: 047
     Dates: start: 201310

REACTIONS (9)
  - Lacrimation increased [Recovering/Resolving]
  - Medication residue present [Recovering/Resolving]
  - Intraocular pressure increased [Not Recovered/Not Resolved]
  - Eyelid bleeding [Recovering/Resolving]
  - Erythema of eyelid [Recovering/Resolving]
  - Eyelid dermatochalasis [Not Recovered/Not Resolved]
  - Eyelid irritation [Recovering/Resolving]
  - Hypersensitivity [Recovering/Resolving]
  - Foreign body sensation in eyes [Recovering/Resolving]
